FAERS Safety Report 19940556 (Version 2)
Quarter: 2021Q4

REPORT INFORMATION
  Report Type: Spontaneous
  Country: US (occurrence: US)
  Receive Date: 20211011
  Receipt Date: 20211027
  Transmission Date: 20220303
  Serious: No
  Sender: FDA-Public Use
  Company Number: US-CELGENE-USA-20211000468

PATIENT
  Age: 14 Year
  Sex: Female
  Weight: 33.6 kg

DRUGS (19)
  1. THALOMID [Suspect]
     Active Substance: THALIDOMIDE
     Indication: Bone cancer
     Dosage: 100 MILLIGRAM
     Route: 048
     Dates: start: 20210923
  2. ZYPREXA [Suspect]
     Active Substance: OLANZAPINE
     Indication: Nausea
     Route: 048
     Dates: start: 20210909
  3. METHADONE [Suspect]
     Active Substance: METHADONE HYDROCHLORIDE
     Indication: Pain
     Dosage: 6 MILLILITER
     Route: 048
     Dates: start: 20210909
  4. HYDROXYZINE HYDROCHLORIDE [Concomitant]
     Active Substance: HYDROXYZINE HYDROCHLORIDE
     Indication: Nausea
     Dosage: 40 MILLILITER
     Route: 048
     Dates: start: 20191106
  5. ONDANSETRON [Concomitant]
     Active Substance: ONDANSETRON
     Indication: Nausea
     Dosage: 1.5 TABLET
     Route: 048
     Dates: start: 20191106
  6. CELECOXIB [Concomitant]
     Active Substance: CELECOXIB
     Indication: Ewing^s sarcoma
     Route: 048
     Dates: start: 20210907
  7. CYCLOPHOSPHAMIDE [Concomitant]
     Active Substance: CYCLOPHOSPHAMIDE
     Indication: Ewing^s sarcoma
     Dosage: 2 TABLETS DAILY ALTERNATING WITH ETOPOSIDE
     Route: 048
     Dates: start: 20210907
  8. ETOPOSIDE [Concomitant]
     Active Substance: ETOPOSIDE
     Indication: Ewing^s sarcoma
     Dosage: 1 CAPSULE DAILY ALTERNATING WITH CYCLOPHOSPHAMIDE
     Route: 048
     Dates: start: 20210913
  9. FENOFIBRATE [Concomitant]
     Active Substance: FENOFIBRATE
     Indication: Ewing^s sarcoma
     Dosage: 2 TABLETS
     Route: 048
     Dates: start: 20210907
  10. ESOMEPRAZOLE SODIUM [Concomitant]
     Active Substance: ESOMEPRAZOLE SODIUM
     Indication: Gastritis
     Route: 048
     Dates: start: 20210914
  11. ACT Restoring Fluoride rinse [Concomitant]
     Indication: Routine health maintenance
     Route: 048
     Dates: start: 20210316
  12. LIDOCAINE\PRILOCAINE [Concomitant]
     Active Substance: LIDOCAINE\PRILOCAINE
     Indication: Routine health maintenance
     Route: 048
     Dates: start: 20191106
  13. NYSTATIN [Concomitant]
     Active Substance: NYSTATIN
     Indication: Routine health maintenance
     Dosage: 10 MILLILITER
     Route: 048
     Dates: start: 20191106
  14. VITAMIN D [Concomitant]
     Active Substance: VITAMIN D NOS
     Indication: Vitamin D decreased
     Dosage: 25 MICROGRAM
     Route: 048
     Dates: start: 20210124
  15. Sulfamethoxozole-Trimethoprim [Concomitant]
     Indication: Pneumocystis jirovecii pneumonia
     Dosage: 400-80 MILLIGRAM
     Route: 048
     Dates: start: 20200129
  16. OXYCODONE HYDROCHLORIDE [Concomitant]
     Active Substance: OXYCODONE HYDROCHLORIDE
     Indication: Pain
     Dosage: 5MG/5ML
     Route: 048
     Dates: start: 20210511
  17. POLYETHYLENE GLYCOLS [Concomitant]
     Active Substance: POLYETHYLENE GLYCOLS
     Indication: Constipation
     Dosage: 8.5 GRAM
     Route: 048
     Dates: start: 20191106
  18. SENNA [Concomitant]
     Active Substance: SENNA LEAF\SENNOSIDES\SENNOSIDES A AND B
     Indication: Constipation
     Dosage: 8.6 MILLIGRAM
     Route: 048
     Dates: start: 20191107
  19. LIDOCAINE [Concomitant]
     Active Substance: LIDOCAINE
     Indication: Back pain
     Dosage: APPLY TO AFFECTED AREA FOR 12 HOURS THEN REMOVE AND LEAVE OFF FOR 12 HOURS
     Route: 048
     Dates: start: 20210824

REACTIONS (1)
  - Somnolence [Unknown]

NARRATIVE: CASE EVENT DATE: 20210926
